FAERS Safety Report 6825607-3 (Version None)
Quarter: 2010Q3

REPORT INFORMATION
  Report Type: 
  Country: None (occurrence: None)
  Receive Date: 20100708
  Receipt Date: 20090507
  Transmission Date: 20110219
  Serious: No
  Sender: FDA-Public Use
  Company Number: US-PFIZER INC-2006123167

PATIENT
  Sex: Female
  Weight: 81.65 kg

DRUGS (6)
  1. CHANTIX [Suspect]
     Dosage: 0.5 MG, 1X/DAY
     Dates: start: 20060101
  2. LITHIUM CARBONATE [Concomitant]
  3. SYNTHROID [Concomitant]
  4. LEXAPRO [Concomitant]
  5. ABILIFY [Concomitant]
  6. KLONOPIN [Concomitant]

REACTIONS (2)
  - HEART RATE INCREASED [None]
  - RENAL FUNCTION TEST ABNORMAL [None]
